FAERS Safety Report 13185029 (Version 1)
Quarter: 2017Q1

REPORT INFORMATION
  Report Type: Spontaneous
  Country: ES (occurrence: US)
  Receive Date: 20170203
  Receipt Date: 20170203
  Transmission Date: 20170428
  Serious: Yes (Other)
  Sender: FDA-Public Use
  Company Number: US-UNICHEM LABORATORIES LIMITED-UCM201701-000017

PATIENT
  Age: 77 Year
  Sex: Female

DRUGS (4)
  1. DIVALPROEX SODIUM. [Suspect]
     Active Substance: DIVALPROEX SODIUM
     Indication: EPILEPSY
  2. PREDNISONE. [Concomitant]
     Active Substance: PREDNISONE
     Indication: GLOMERULONEPHRITIS PROLIFERATIVE
  3. ASPIRIN. [Concomitant]
     Active Substance: ASPIRIN
  4. CELLULASE [Concomitant]
     Active Substance: CELLULASE

REACTIONS (3)
  - Somnolence [Unknown]
  - Toxicity to various agents [Unknown]
  - Loss of consciousness [Unknown]
